FAERS Safety Report 16981772 (Version 1)
Quarter: 2019Q4

REPORT INFORMATION
  Report Type: Spontaneous
  Country: IT (occurrence: IT)
  Receive Date: 20191101
  Receipt Date: 20191101
  Transmission Date: 20200122
  Serious: Yes (Other)
  Sender: FDA-Public Use
  Company Number: IT-SUN PHARMACEUTICAL INDUSTRIES LTD-2019RR-225700

PATIENT
  Age: 62 Year
  Sex: Female
  Weight: 78 kg

DRUGS (3)
  1. LEVOTONAL175 MG POLVERE PER SOLUZIONE PER INFUSIONE [Concomitant]
     Indication: APPENDIX CANCER
     Dosage: 189 MILLIGRAM
     Route: 042
     Dates: start: 20190909, end: 20190909
  2. FLUOROURACILE AHCL [Concomitant]
     Active Substance: FLUOROURACIL
     Indication: APPENDIX CANCER
     Dosage: 453.6 MILLIGRAM
     Route: 042
     Dates: start: 20190909, end: 20190909
  3. OXALIPLATINO SUN [Suspect]
     Active Substance: OXALIPLATIN
     Indication: APPENDIX CANCER
     Dosage: CYCLICAL
     Route: 042
     Dates: start: 20191009, end: 20191009

REACTIONS (5)
  - Hypertension [Recovered/Resolved]
  - Sciatica [Recovered/Resolved]
  - Headache [Recovered/Resolved]
  - Tachypnoea [Recovered/Resolved]
  - Dyspnoea [Recovered/Resolved]

NARRATIVE: CASE EVENT DATE: 20191009
